FAERS Safety Report 14416848 (Version 1)
Quarter: 2020Q3

REPORT INFORMATION
  Report Type: Spontaneous
  Country: FR (occurrence: FR)
  Receive Date: 20180122
  Receipt Date: 20180122
  Transmission Date: 20201104
  Serious: Yes (Hospitalization)
  Sender: FDA-Public Use
  Company Number: FR-BAXTER-2018BAX001425

PATIENT
  Age: 88 Year
  Sex: Female
  Weight: 54 kg

DRUGS (21)
  1. SUFENTANIL [Suspect]
     Active Substance: SUFENTANIL
     Indication: ANAESTHESIA PROCEDURE
     Route: 042
     Dates: start: 20170227, end: 20170227
  2. TOBRADEX [Suspect]
     Active Substance: DEXAMETHASONE\TOBRAMYCIN
     Indication: ANTIBIOTIC PROPHYLAXIS
     Dosage: TOBRADEX COLLYRE EN SUSPENSION
     Route: 047
     Dates: start: 20170228, end: 20170309
  3. SUPRANE [Suspect]
     Active Substance: DESFLURANE
     Indication: ANAESTHESIA PROCEDURE
     Dosage: UNKNOWN
     Route: 055
     Dates: start: 20170227, end: 20170227
  4. COMBIGAN [Suspect]
     Active Substance: BRIMONIDINE TARTRATE\TIMOLOL MALEATE
     Indication: VITRECTOMY
     Dosage: COMBIGAN COLLYRE EN SOLUTION
     Route: 047
     Dates: start: 20170228, end: 20170309
  5. MYDRIATICUM [Suspect]
     Active Substance: TROPICAMIDE
     Indication: MYDRIASIS
     Dosage: MYDRIATICUM 0,5 POUR CENT, COLLYRE
     Route: 047
     Dates: start: 20170228, end: 20170228
  6. TRACRIUM [Suspect]
     Active Substance: ATRACURIUM BESYLATE
     Indication: ANAESTHESIA PROCEDURE
     Route: 042
     Dates: start: 20170227, end: 20170227
  7. PROPOFOL PANPHARMA 10 MG/ML EMULSION INJECTABLE [Suspect]
     Active Substance: PROPOFOL
     Indication: ANAESTHESIA PROCEDURE
     Route: 042
     Dates: start: 20170227, end: 20170227
  8. METHYLPREDNISOLONE. [Suspect]
     Active Substance: METHYLPREDNISOLONE
     Indication: VITRECTOMY
     Route: 042
     Dates: start: 20170227, end: 20170227
  9. DEXAFREE [Suspect]
     Active Substance: DEXAMETHASONE SODIUM PHOSPHATE
     Indication: VITRECTOMY
     Dosage: DEXAFREE 1 MG/ML COLLYRE EN SOLUTION
     Route: 047
     Dates: start: 20170228, end: 20170228
  10. NEOSYNEPHRINE [Suspect]
     Active Substance: PHENYLEPHRINE HYDROCHLORIDE
     Indication: VITRECTOMY
     Route: 042
     Dates: start: 20170227, end: 20170227
  11. OFLOCET [Suspect]
     Active Substance: OFLOXACIN
     Indication: ANTIBIOTIC PROPHYLAXIS
     Route: 048
     Dates: start: 20170227, end: 20170227
  12. STERDEX [Suspect]
     Active Substance: DEXAMETHASONE\OXYTETRACYCLINE
     Indication: ANTIBIOTIC PROPHYLAXIS
     Dosage: POMMADE OPHTALMIQUE EN RECIPIENT UNIDOSE. UNKNOWN.
     Route: 047
     Dates: start: 20170227, end: 20170228
  13. TOPALGIC (TRAMADOL HYDROCHLORIDE) [Suspect]
     Active Substance: TRAMADOL HYDROCHLORIDE
     Indication: PAIN
     Dosage: TOPALGIC 50 MG, GELULE
     Route: 048
     Dates: start: 20170228, end: 20170228
  14. NEFOPAM (CHLORHYDRATE DE) [Suspect]
     Active Substance: NEFOPAM HYDROCHLORIDE
     Indication: PAIN PROPHYLAXIS
     Route: 042
     Dates: start: 20170227, end: 20170227
  15. RIFAMYCINE CHIBRET [Suspect]
     Active Substance: RIFAMYCIN
     Indication: ANTIBIOTIC PROPHYLAXIS
     Dosage: RIFAMYCINE CHIBRET 1 000 000 UI/100 G, POMMADE OPHTALMIQUE
     Route: 047
     Dates: start: 20170228, end: 20170306
  16. ATARAX [Concomitant]
     Active Substance: HYDROXYZINE HYDROCHLORIDE
     Indication: RASH
     Dosage: ATARAX 25 MG, COMPRIME PELLICULE SECABLE
     Route: 048
     Dates: start: 20170227, end: 20170227
  17. PERFALGAN [Suspect]
     Active Substance: ACETAMINOPHEN
     Indication: PAIN PROPHYLAXIS
     Dosage: PERFALGAN 10 MG/ML, SOLUTION POUR PERFUSION
     Route: 042
     Dates: start: 20170227, end: 20170227
  18. NEOSYNEPHRINE [Suspect]
     Active Substance: PHENYLEPHRINE HYDROCHLORIDE
     Indication: ANTIBIOTIC PROPHYLAXIS
     Route: 047
     Dates: start: 20170228, end: 20170228
  19. CORTANCYL [Suspect]
     Active Substance: PREDNISONE
     Indication: VITRECTOMY
     Dosage: UNKNOWN
     Route: 048
     Dates: start: 20170228, end: 20170309
  20. AZYTER [Suspect]
     Active Substance: AZITHROMYCIN ANHYDROUS
     Indication: ANTIBIOTIC PROPHYLAXIS
     Dosage: AZYTER 15 MG/G, COLLYRE EN SOLUTION EN RECIPIENT UNIDOSE
     Route: 047
     Dates: start: 20170228, end: 20170228
  21. EPHEDRINE. [Suspect]
     Active Substance: EPHEDRINE
     Indication: VITRECTOMY
     Route: 042
     Dates: start: 20170227, end: 20170227

REACTIONS (1)
  - Drug reaction with eosinophilia and systemic symptoms [Recovering/Resolving]

NARRATIVE: CASE EVENT DATE: 20170306
